FAERS Safety Report 7900850-0 (Version None)
Quarter: 2011Q4

REPORT INFORMATION
  Report Type: 
  Country: None (occurrence: None)
  Receive Date: 20111108
  Receipt Date: 20111108
  Transmission Date: 20120403
  Serious: No
  Sender: FDA-Public Use
  Company Number: None

PATIENT
  Age: 26 Year
  Sex: Male

DRUGS (1)
  1. PLAK VAC MOUTHWASH [Suspect]
     Indication: DENTAL DISORDER PROPHYLAXIS
     Dosage: ORAL CARE SYSTEM MOUTHWASH
     Route: 048
     Dates: start: 20111017, end: 20111021

REACTIONS (8)
  - MYALGIA [None]
  - BURKHOLDERIA TEST POSITIVE [None]
  - BACTERAEMIA [None]
  - PERICARDIAL EFFUSION [None]
  - PLEURAL EFFUSION [None]
  - FATIGUE [None]
  - EMPYEMA [None]
  - LEUKOCYTOSIS [None]
